FAERS Safety Report 12801900 (Version 1)
Quarter: 2016Q4

REPORT INFORMATION
  Report Type: Spontaneous
  Country: PT (occurrence: PT)
  Receive Date: 20161003
  Receipt Date: 20161003
  Transmission Date: 20170207
  Serious: Yes (Hospitalization)
  Sender: FDA-Public Use
  Company Number: PT-SUN PHARMACEUTICAL INDUSTRIES LTD-2016RR-125139

PATIENT
  Age: 76 Year
  Sex: Female

DRUGS (1)
  1. AMOXICILINA+ACIDO CLAVULANICO [Suspect]
     Active Substance: AMOXICILLIN\CLAVULANIC ACID
     Indication: GOUTY TOPHUS
     Route: 065

REACTIONS (2)
  - Chronic kidney disease [None]
  - Acute generalised exanthematous pustulosis [Recovered/Resolved]
